FAERS Safety Report 23087695 (Version 1)
Quarter: 2023Q4

REPORT INFORMATION
  Report Type: Spontaneous
  Country: US (occurrence: US)
  Receive Date: 20231020
  Receipt Date: 20231020
  Transmission Date: 20240109
  Serious: No
  Sender: FDA-Public Use
  Company Number: US-BRISTOL-MYERS SQUIBB COMPANY-2023-149272

PATIENT
  Age: 75 Year
  Sex: Female

DRUGS (2)
  1. REVLIMID [Suspect]
     Active Substance: LENALIDOMIDE
     Indication: Bone cancer
     Dosage: TAKE 1 CAPSULE BY MOUTH DAILY ON DAYS 1-14 OF EACH 21 DAY CYCLE. TAKE WHOLE WITH WATER AT THE SAME T
     Route: 048
     Dates: start: 20230508
  2. REVLIMID [Suspect]
     Active Substance: LENALIDOMIDE
     Dosage: TAKE 1 CAPSULE BY MOUTH DAILY ON DAYS 1-14 OF EACH 21 DAY CYCLE. TAKE WHOLE WITH WATER
     Route: 048
     Dates: start: 20230524

REACTIONS (1)
  - Off label use [Unknown]
